FAERS Safety Report 15074957 (Version 2)
Quarter: 2023Q4

REPORT INFORMATION
  Report Type: Report from Study
  Country: US (occurrence: US)
  Receive Date: 20180627
  Receipt Date: 20231128
  Transmission Date: 20240110
  Serious: Yes (Other)
  Sender: FDA-Public Use
  Company Number: US-SAOL THERAPEUTICS-2017SAO01551

PATIENT
  Sex: Male
  Weight: 87.982 kg

DRUGS (2)
  1. LIORESAL [Suspect]
     Active Substance: BACLOFEN
     Indication: Muscle spasticity
     Dosage: 999.9 ?G \DAY
     Route: 037
     Dates: end: 20161101
  2. LIORESAL [Suspect]
     Active Substance: BACLOFEN
     Dosage: 649.6 ?G, \DAY
     Route: 037
     Dates: start: 20161101

REACTIONS (3)
  - Muscle spasticity [Recovered/Resolved]
  - Device occlusion [Recovered/Resolved]
  - Underdose [Recovered/Resolved]

NARRATIVE: CASE EVENT DATE: 20160101
